FAERS Safety Report 19804178 (Version 1)
Quarter: 2021Q3

REPORT INFORMATION
  Report Type: Spontaneous
  Country: US (occurrence: US)
  Receive Date: 20210908
  Receipt Date: 20210908
  Transmission Date: 20211014
  Serious: No
  Sender: FDA-Public Use
  Company Number: US-FARMAPROD-202106-1021

PATIENT
  Sex: Female

DRUGS (22)
  1. XARELTO [Concomitant]
     Active Substance: RIVAROXABAN
  2. FISH OIL?VIT D3 [Concomitant]
     Dosage: 1200 MG?1000
  3. DIPHENHYDRAMINE HCL [Concomitant]
     Active Substance: DIPHENHYDRAMINE HYDROCHLORIDE
  4. NADOLOL. [Concomitant]
     Active Substance: NADOLOL
  5. VIGAMOX [Concomitant]
     Active Substance: MOXIFLOXACIN HYDROCHLORIDE
  6. PREDNISOLONE?NEPAFENAC [Concomitant]
  7. DICLOFENAC EPOLAMINE [Concomitant]
     Active Substance: DICLOFENAC EPOLAMINE
  8. PREMARIN [Concomitant]
     Active Substance: ESTROGENS, CONJUGATED
  9. MAXITROL [Concomitant]
     Active Substance: DEXAMETHASONE\NEOMYCIN SULFATE\POLYMYXIN B SULFATE
  10. DULOXETINE HCL [Concomitant]
     Active Substance: DULOXETINE HYDROCHLORIDE
  11. SIMVASTATIN. [Concomitant]
     Active Substance: SIMVASTATIN
  12. MULTIVITAMINS [Concomitant]
     Active Substance: VITAMINS
  13. MOXIFLOXACIN. [Concomitant]
     Active Substance: MOXIFLOXACIN
  14. AMLODIPINE AND ATORVASTATIN [Concomitant]
     Active Substance: AMLODIPINE BESYLATE\ATORVASTATIN CALCIUM
  15. OXERVATE [Suspect]
     Active Substance: CENEGERMIN-BKBJ
     Indication: ULCERATIVE KERATITIS
     Route: 047
     Dates: start: 20210611
  16. ZOFRAN [Concomitant]
     Active Substance: ONDANSETRON HYDROCHLORIDE
  17. LOSARTAN?HYDROCHLOROTHIAZIDE [Concomitant]
     Active Substance: HYDROCHLOROTHIAZIDE\LOSARTAN
  18. BELSOMRA [Concomitant]
     Active Substance: SUVOREXANT
  19. FUROSEMIDE. [Concomitant]
     Active Substance: FUROSEMIDE
  20. VITAMIN C [Concomitant]
     Active Substance: ASCORBIC ACID
  21. LATANOPROST. [Concomitant]
     Active Substance: LATANOPROST
  22. VITAMIN D3 [Concomitant]
     Active Substance: CHOLECALCIFEROL

REACTIONS (3)
  - Eye pain [Unknown]
  - Lacrimation increased [Not Recovered/Not Resolved]
  - Paraesthesia [Not Recovered/Not Resolved]
